FAERS Safety Report 4962702-8 (Version None)
Quarter: 2006Q2

REPORT INFORMATION
  Report Type: 
  Country: None (occurrence: None)
  Receive Date: 20060404
  Receipt Date: 20051201
  Transmission Date: 20061013
  Serious: Yes (Hospitalization, Other)
  Sender: FDA-Public Use
  Company Number: US-MERCK-0512USA00521

PATIENT
  Age: 54 Year
  Sex: Male
  Weight: 149 kg

DRUGS (3)
  1. VIOXX [Suspect]
     Route: 048
     Dates: start: 20010301, end: 20011101
  2. VIOXX [Suspect]
     Route: 048
     Dates: start: 20011101, end: 20030501
  3. LOTENSIN [Concomitant]
     Route: 065

REACTIONS (28)
  - ARTHRITIS [None]
  - BALANCE DISORDER [None]
  - BENIGN NEOPLASM OF EPIDIDYMIS [None]
  - BLOOD GLUCOSE INCREASED [None]
  - CEREBELLAR INFARCTION [None]
  - CEREBRAL INFARCTION [None]
  - CEREBROVASCULAR ACCIDENT [None]
  - COUGH [None]
  - DYSURIA [None]
  - EJACULATION DISORDER [None]
  - EYE PAIN [None]
  - FALL [None]
  - GAIT DISTURBANCE [None]
  - HEPATIC ENZYME INCREASED [None]
  - HYPERGLYCAEMIA [None]
  - HYPOAESTHESIA [None]
  - MICROANGIOPATHY [None]
  - MUSCLE STRAIN [None]
  - NAUSEA [None]
  - NECK PAIN [None]
  - OBESITY [None]
  - PHARYNGEAL OEDEMA [None]
  - RADICULOPATHY [None]
  - SHOULDER PAIN [None]
  - TENDON RUPTURE [None]
  - TESTICULAR NEOPLASM [None]
  - VERTEBRAL ARTERY OCCLUSION [None]
  - VOMITING [None]
